FAERS Safety Report 9309514 (Version 1)
Quarter: 2013Q2

REPORT INFORMATION
  Report Type: Spontaneous
  Country: US (occurrence: US)
  Receive Date: 20130525
  Receipt Date: 20130525
  Transmission Date: 20140414
  Serious: No
  Sender: FDA-Public Use
  Company Number: US-BRISTOL-MYERS SQUIBB COMPANY-18727065

PATIENT
  Age: 60 Year
  Sex: Female

DRUGS (5)
  1. BYDUREON [Suspect]
     Indication: HYPERINSULINAEMIA
     Dosage: ONGOING
     Route: 058
     Dates: start: 201211
  2. GLUCOPHAGE [Concomitant]
     Indication: HYPERINSULINAEMIA
     Dosage: 1000 MG EACH MORNING AND 1500 MG EACH EVENING
     Route: 048
  3. CRESTOR [Concomitant]
     Indication: HYPERCHOLESTEROLAEMIA
  4. DIOVAN [Concomitant]
     Indication: HYPERTENSION
  5. METOPROLOL [Concomitant]

REACTIONS (1)
  - Injection site nodule [Unknown]
